FAERS Safety Report 8969585 (Version 1)
Quarter: 2012Q4

REPORT INFORMATION
  Report Type: 
  Country: US (occurrence: US)
  Receive Date: 20121218
  Receipt Date: 20121218
  Transmission Date: 20130627
  Serious: No
  Sender: FDA-Public Use
  Company Number: US-BRISTOL-MYERS SQUIBB COMPANY-16607087

PATIENT
  Age: 49 Year
  Sex: Female

DRUGS (6)
  1. ABILIFY [Suspect]
     Indication: NEGATIVE THOUGHTS
  2. CYMBALTA [Suspect]
     Indication: NEGATIVE THOUGHTS
  3. REMERON [Suspect]
     Indication: NEGATIVE THOUGHTS
  4. AMBIEN [Concomitant]
  5. KLONOPIN [Concomitant]
  6. CLONAZEPAM [Concomitant]

REACTIONS (4)
  - Depression [Unknown]
  - Fatigue [Unknown]
  - Asthenia [Unknown]
  - Sleep disorder [Unknown]
